FAERS Safety Report 12551849 (Version 1)
Quarter: 2016Q3

REPORT INFORMATION
  Report Type: Spontaneous
  Country: US (occurrence: None)
  Receive Date: 20160712
  Receipt Date: 20160712
  Transmission Date: 20161109
  Serious: Yes (Other)
  Sender: FDA-Public Use
  Company Number: None

PATIENT
  Age: 41 Year
  Sex: Female
  Weight: 45.36 kg

DRUGS (3)
  1. LYRICA [Suspect]
     Active Substance: PREGABALIN
     Indication: NEUROPATHY PERIPHERAL
     Dosage: 1 CAPSULE(S) TWICE A DAY TAKEN BY MOUTH
     Route: 048
     Dates: start: 20160608, end: 20160706
  2. LIDOCAINE WITH DICLOFENAC 2% [Concomitant]
  3. LYRICA [Suspect]
     Active Substance: PREGABALIN
     Indication: PELVIC PAIN
     Dosage: 1 CAPSULE(S) TWICE A DAY TAKEN BY MOUTH
     Route: 048
     Dates: start: 20160608, end: 20160706

REACTIONS (11)
  - Confusional state [None]
  - Heart rate irregular [None]
  - Therapy cessation [None]
  - Anxiety [None]
  - Discomfort [None]
  - Hyperacusis [None]
  - Anger [None]
  - Somnolence [None]
  - Dyspnoea [None]
  - Heart rate increased [None]
  - Aggression [None]

NARRATIVE: CASE EVENT DATE: 20160705
